FAERS Safety Report 7116088-3 (Version None)
Quarter: 2010Q4

REPORT INFORMATION
  Report Type: 
  Country: None (occurrence: None)
  Receive Date: 20101122
  Receipt Date: 20101111
  Transmission Date: 20110411
  Serious: Yes (Hospitalization, Other)
  Sender: FDA-Public Use
  Company Number: CA-BAXTER-2010BH024216

PATIENT
  Age: 52 Year
  Sex: Female
  Weight: 50 kg

DRUGS (6)
  1. GAMMAGARD LIQUID [Suspect]
     Indication: APLASIA PURE RED CELL
     Route: 042
     Dates: start: 20100819, end: 20100819
  2. GAMMAGARD LIQUID [Suspect]
     Indication: OFF LABEL USE
     Route: 042
     Dates: start: 20100819, end: 20100819
  3. IMMUNOGLOBULIN HUMAN NORMAL [Suspect]
     Indication: APLASIA PURE RED CELL
     Route: 042
     Dates: start: 20100818, end: 20100818
  4. PREDNISONE [Concomitant]
     Route: 048
  5. RED BLOOD CELLS, CONCENTRATED [Concomitant]
     Dates: start: 20100818, end: 20100818
  6. BLOOD AND RELATED PRODUCTS [Concomitant]
     Indication: APLASIA PURE RED CELL
     Dates: start: 20090801, end: 20100701

REACTIONS (2)
  - ANTI-ERYTHROCYTE ANTIBODY POSITIVE [None]
  - HAEMOLYSIS [None]
